FAERS Safety Report 8157212-3 (Version None)
Quarter: 2012Q1

REPORT INFORMATION
  Report Type: 
  Country: None (occurrence: None)
  Receive Date: 20120222
  Receipt Date: 20120222
  Transmission Date: 20120608
  Serious: Yes (Life-Threatening)
  Sender: FDA-Public Use
  Company Number: None

PATIENT
  Age: 45 Year
  Sex: Female
  Weight: 108.86 kg

DRUGS (1)
  1. HYDROCODONE BITARTRATE [Suspect]
     Indication: BACK PAIN

REACTIONS (9)
  - PARAESTHESIA [None]
  - CHEST PAIN [None]
  - BACK PAIN [None]
  - CEREBROVASCULAR ACCIDENT [None]
  - THIRST [None]
  - DYSPNOEA [None]
  - COMPUTERISED TOMOGRAM ABNORMAL [None]
  - FEELING ABNORMAL [None]
  - CONDITION AGGRAVATED [None]
